FAERS Safety Report 8572130-4 (Version None)
Quarter: 2012Q3

REPORT INFORMATION
  Report Type: 
  Country: None (occurrence: None)
  Receive Date: 20120724
  Receipt Date: 20120710
  Transmission Date: 20120928
  Serious: Yes (Hospitalization)
  Sender: FDA-Public Use
  Company Number: TPA2012A04868

PATIENT
  Age: 82 Year
  Sex: Male

DRUGS (3)
  1. GASMOTINN (MOSAPRIDE CITRATE) [Concomitant]
  2. PARIET (RAEPRAZOLE SODIUM) [Concomitant]
  3. FEBURIC (FEBUXOSTAT) [Suspect]
     Dosage: 10 MG (10 MG, 1 IN 1 D) PER ORAL
     Route: 048

REACTIONS (2)
  - INFECTIOUS PERITONITIS [None]
  - SMALL INTESTINAL PERFORATION [None]
